FAERS Safety Report 8559264-5 (Version None)
Quarter: 2012Q3

REPORT INFORMATION
  Report Type: 
  Country: None (occurrence: None)
  Receive Date: 20120802
  Receipt Date: 20120725
  Transmission Date: 20120928
  Serious: Yes (Other)
  Sender: FDA-Public Use
  Company Number: PHHY2012JP045635

PATIENT
  Sex: Female

DRUGS (2)
  1. TOREMIFENE [Suspect]
     Route: 048
  2. FEMARA [Suspect]
     Route: 048

REACTIONS (2)
  - UTERINE LEIOMYOMA [None]
  - CONDITION AGGRAVATED [None]
